FAERS Safety Report 5541794-1 (Version None)
Quarter: 2007Q4

REPORT INFORMATION
  Report Type: 
  Country: None (occurrence: None)
  Receive Date: 20071210
  Receipt Date: 20071206
  Transmission Date: 20080405
  Serious: Yes (Life-Threatening)
  Sender: FDA-Public Use
  Company Number: B0498854A

PATIENT
  Age: 1 Year
  Sex: Female
  Weight: 7.5 kg

DRUGS (5)
  1. ZIDOVUDINE [Suspect]
     Indication: HIV INFECTION
     Dosage: 70MG TWICE PER DAY
     Route: 048
     Dates: start: 20070828
  2. LAMIVUDINE [Suspect]
     Indication: HIV INFECTION
     Dosage: 20MG TWICE PER DAY
     Route: 048
     Dates: start: 20070828
  3. NEVIRAPINE [Suspect]
     Indication: HIV INFECTION
     Dosage: 60MG TWICE PER DAY
     Route: 048
     Dates: start: 20070828
  4. BACTRIM [Concomitant]
  5. INH [Concomitant]

REACTIONS (1)
  - TRANSAMINASES INCREASED [None]
